FAERS Safety Report 4459545-0 (Version None)
Quarter: 2004Q3

REPORT INFORMATION
  Report Type: 
  Country: None (occurrence: None)
  Receive Date: 20040910
  Receipt Date: 20040514
  Transmission Date: 20050211
  Serious: No
  Sender: FDA-Public Use
  Company Number: 2004214206US

PATIENT
  Age: 49 Year
  Sex: Female
  Weight: 60.3 kg

DRUGS (3)
  1. BEXTRA [Suspect]
     Indication: ARTHRITIS
     Dosage: 20 MG, QD
     Dates: end: 20040401
  2. ALLEGRA [Concomitant]
  3. ZOLOFT [Concomitant]

REACTIONS (6)
  - ABDOMINAL PAIN UPPER [None]
  - DIARRHOEA [None]
  - GASTRIC ULCER [None]
  - HEADACHE [None]
  - NAUSEA [None]
  - VAGINAL DISCHARGE [None]
